FAERS Safety Report 10421102 (Version 1)
Quarter: 2014Q3

REPORT INFORMATION
  Report Type: Spontaneous
  Country: US (occurrence: None)
  Receive Date: 20140722
  Receipt Date: 20140722
  Transmission Date: 20150326
  Serious: No
  Sender: FDA-Public Use
  Company Number: 163-10004-14055350

PATIENT
  Age: 69 Year
  Sex: Male
  Weight: 115.21 kg

DRUGS (2)
  1. PREDNISONE. [Concomitant]
     Active Substance: PREDNISONE
  2. OTEZLA [Suspect]
     Active Substance: APREMILAST
     Indication: PSORIATIC ARTHROPATHY
     Route: 048
     Dates: start: 20140518

REACTIONS (3)
  - Drug ineffective [None]
  - Decreased appetite [None]
  - Abdominal discomfort [None]

NARRATIVE: CASE EVENT DATE: 20140519
